FAERS Safety Report 16199873 (Version 2)
Quarter: 2019Q2

REPORT INFORMATION
  Report Type: Report from Study
  Country: FR (occurrence: FR)
  Receive Date: 20190415
  Receipt Date: 20190508
  Transmission Date: 20190711
  Serious: Yes (Hospitalization)
  Sender: FDA-Public Use
  Company Number: FR-ROCHE-2245249

PATIENT
  Age: 38 Year
  Sex: Female

DRUGS (4)
  1. BEVACIZUMAB. [Suspect]
     Active Substance: BEVACIZUMAB
     Indication: CERVIX CARCINOMA
     Dosage: SHE RECEVED MOST RECENT DOSE OF BEVACIZUMAB PRIOR TO SAE ONSET ON 23/JAN/2018.
     Route: 065
     Dates: start: 20170109, end: 20180123
  2. LOVENOX [Concomitant]
     Active Substance: ENOXAPARIN SODIUM
     Route: 058
  3. BLINDED OLAPARIB [Suspect]
     Active Substance: OLAPARIB
     Indication: CERVIX CARCINOMA
     Dosage: SHE RECEIVERD MOST RECENT DOSE OLAPARIB PRIOR TO SAE ONSET ON 28/DEC/2018.
     Route: 065
     Dates: start: 20170109, end: 20181229
  4. ATENOLOL. [Concomitant]
     Active Substance: ATENOLOL
     Route: 048

REACTIONS (1)
  - Cervix disorder [Recovered/Resolved]

NARRATIVE: CASE EVENT DATE: 20181229
